FAERS Safety Report 17968027 (Version 2)
Quarter: 2020Q4

REPORT INFORMATION
  Report Type: Spontaneous
  Country: PT (occurrence: PT)
  Receive Date: 20200701
  Receipt Date: 20201016
  Transmission Date: 20210113
  Serious: Yes (Hospitalization)
  Sender: FDA-Public Use
  Company Number: NVSC2020PT181460

PATIENT
  Age: 58 Year
  Sex: Male

DRUGS (3)
  1. IG VENA [Concomitant]
     Active Substance: HUMAN IMMUNOGLOBULIN G
     Indication: PRODUCT USED FOR UNKNOWN INDICATION
     Dosage: 20 MG, Q4W (LAST ADMINITSRATION DOSE DATE WAS 16 MAR 2020)
     Route: 065
     Dates: start: 20200219
  2. PRIVIGEN [Concomitant]
     Active Substance: HUMAN IMMUNOGLOBULIN G
     Indication: PRODUCT USED FOR UNKNOWN INDICATION
     Dosage: 40 MG, Q4W (20MG 4/4 SEMANAS)
     Route: 065
     Dates: start: 20200316, end: 20200414
  3. CARBAMAZEPINE. [Suspect]
     Active Substance: CARBAMAZEPINE
     Indication: NEUROMYOTONIA
     Dosage: 400 MG, QD
     Route: 048
     Dates: start: 20200212

REACTIONS (5)
  - Skin fissures [Recovered/Resolved]
  - Rash pruritic [Recovered/Resolved]
  - Skin exfoliation [Recovered/Resolved]
  - Ocular hyperaemia [Recovered/Resolved]
  - Urticaria [Recovered/Resolved]

NARRATIVE: CASE EVENT DATE: 20200309
